FAERS Safety Report 9384312 (Version 1)
Quarter: 2013Q3

REPORT INFORMATION
  Report Type: Spontaneous
  Country: US (occurrence: US)
  Receive Date: 20130705
  Receipt Date: 20130705
  Transmission Date: 20140515
  Serious: No
  Sender: FDA-Public Use
  Company Number: US-009507513-1307USA002500

PATIENT
  Age: 60 Year
  Sex: Male

DRUGS (1)
  1. SYLATRON [Suspect]
     Dosage: UNK
     Route: 058

REACTIONS (1)
  - Blood pressure decreased [Unknown]
